FAERS Safety Report 4674699-9 (Version None)
Quarter: 2005Q2

REPORT INFORMATION
  Report Type: 
  Country: None (occurrence: None)
  Receive Date: 20050526
  Receipt Date: 20050412
  Transmission Date: 20051028
  Serious: Yes (Hospitalization)
  Sender: FDA-Public Use
  Company Number: PT-BRISTOL-MYERS SQUIBB COMPANY-12933057

PATIENT
  Sex: Male
  Weight: 86 kg

DRUGS (2)
  1. IRBESARTAN [Suspect]
     Route: 048
     Dates: start: 20040101
  2. FLUDEX [Interacting]
     Route: 048
     Dates: start: 20040101

REACTIONS (6)
  - DIZZINESS [None]
  - DRUG INTERACTION [None]
  - HYPOKALAEMIA [None]
  - NAUSEA [None]
  - VERTIGO [None]
  - VOMITING [None]
